FAERS Safety Report 9989015 (Version 1)
Quarter: 2014Q1

REPORT INFORMATION
  Report Type: Spontaneous
  Country: US (occurrence: US)
  Receive Date: 20140310
  Receipt Date: 20140310
  Transmission Date: 20141002
  Serious: No
  Sender: FDA-Public Use
  Company Number: US-ABBVIE-13P-163-1128740-00

PATIENT
  Age: 17 Year
  Sex: Female
  Weight: 56.75 kg

DRUGS (3)
  1. HUMIRA [Suspect]
     Indication: SPONDYLOARTHROPATHY
     Dates: start: 20130718, end: 20130718
  2. HUMIRA [Suspect]
     Indication: ANKYLOSING SPONDYLITIS
  3. VYVANSE [Concomitant]
     Indication: ATTENTION DEFICIT/HYPERACTIVITY DISORDER

REACTIONS (3)
  - Off label use [Unknown]
  - Device malfunction [Recovering/Resolving]
  - Injection site haemorrhage [Recovered/Resolved]
